FAERS Safety Report 6112201-5 (Version None)
Quarter: 2009Q1

REPORT INFORMATION
  Report Type: 
  Country: None (occurrence: None)
  Receive Date: 20090310
  Receipt Date: 20090224
  Transmission Date: 20090719
  Serious: Yes (Other)
  Sender: FDA-Public Use
  Company Number: 14518963

PATIENT
  Sex: Female

DRUGS (3)
  1. EMSAM [Suspect]
     Indication: DEPRESSION
  2. ABILIFY [Suspect]
     Indication: DEPRESSION
     Dosage: 5 MILLIGRAM
  3. SEROQUEL [Suspect]
     Indication: DEPRESSION

REACTIONS (1)
  - AKATHISIA [None]
